FAERS Safety Report 25801651 (Version 1)
Quarter: 2025Q3

REPORT INFORMATION
  Report Type: Report from Study
  Country: US (occurrence: US)
  Receive Date: 20250915
  Receipt Date: 20250915
  Transmission Date: 20251021
  Serious: Yes (Other)
  Sender: ACADIA PHARMACEUTICALS
  Company Number: US-ACADIA PHARMACEUTICALS INC.-ACA-2025-PIM-010126

PATIENT
  Sex: Male

DRUGS (22)
  1. NUPLAZID [Suspect]
     Active Substance: PIMAVANSERIN TARTRATE
     Indication: Parkinson^s disease psychosis
     Dosage: 34 MILLIGRAM, QD
     Route: 048
     Dates: start: 20250221
  2. ASPIRIN [Concomitant]
     Active Substance: ASPIRIN
  3. COENZYME Q10 [Concomitant]
     Active Substance: DIETARY SUPPLEMENT\UBIDECARENONE
  4. FOLIC ACID [Concomitant]
     Active Substance: FOLIC ACID
  5. VITAMIN B12 [Concomitant]
     Active Substance: CYANOCOBALAMIN
  6. CARBIDOPA\LEVODOPA [Concomitant]
     Active Substance: CARBIDOPA\LEVODOPA
  7. TRAZODONE [Concomitant]
     Active Substance: TRAZODONE HYDROCHLORIDE
  8. BUPROPION HYDROCHLORIDE XL [Concomitant]
     Active Substance: BUPROPION HYDROCHLORIDE
  9. GENTAMICIN [Concomitant]
     Active Substance: GENTAMICIN
  10. CITALOPRAM [Concomitant]
     Active Substance: CITALOPRAM
  11. PIOGLITAZONE [Concomitant]
     Active Substance: PIOGLITAZONE
  12. PRAZOSIN [Concomitant]
     Active Substance: PRAZOSIN
  13. CELECOXIB [Concomitant]
     Active Substance: CELECOXIB
  14. FLUTICASONE [Concomitant]
     Active Substance: FLUTICASONE
  15. HYDROCODONE BITARTRATE AND ACETAMINOPHEN [Concomitant]
     Active Substance: ACETAMINOPHEN\HYDROCODONE BITARTRATE
  16. DONEPEZIL [Concomitant]
     Active Substance: DONEPEZIL
  17. ROSUVASTATIN [Concomitant]
     Active Substance: ROSUVASTATIN
  18. JANUVIA [Concomitant]
     Active Substance: SITAGLIPTIN PHOSPHATE
  19. FAMOTIDINE [Concomitant]
     Active Substance: FAMOTIDINE
  20. NALOXONE [Concomitant]
     Active Substance: NALOXONE
  21. PREGABALIN [Concomitant]
     Active Substance: PREGABALIN
  22. JARDIANCE [Concomitant]
     Active Substance: EMPAGLIFLOZIN

REACTIONS (2)
  - Hallucination, tactile [Unknown]
  - Feeling jittery [Not Recovered/Not Resolved]

NARRATIVE: CASE EVENT DATE: 20250101
